FAERS Safety Report 7242664-3 (Version None)
Quarter: 2011Q1

REPORT INFORMATION
  Report Type: 
  Country: None (occurrence: None)
  Receive Date: 20110118
  Receipt Date: 20110106
  Transmission Date: 20110831
  Serious: Yes (Death, Hospitalization, Other)
  Sender: FDA-Public Use
  Company Number: 2009AC000166

PATIENT
  Age: 86 Year
  Sex: Female

DRUGS (54)
  1. SIMVASTATIN [Concomitant]
  2. ACCUPRIL [Concomitant]
  3. ANAPLEX DM [Concomitant]
  4. ZANTAC [Concomitant]
  5. NAPROXEN [Concomitant]
  6. DIGOXIN [Suspect]
     Dosage: 0.25 MG;QD;PO
     Route: 048
     Dates: start: 19930713, end: 20000401
  7. LYOFOAM [Concomitant]
  8. ZOFRAN [Concomitant]
  9. QUINAPRIL [Concomitant]
  10. FUROSEMIDE [Concomitant]
  11. CAPOTEN [Concomitant]
  12. POTASSIUM [Concomitant]
  13. VITAMIN E [Concomitant]
  14. ISONIAZID [Concomitant]
  15. VIT B12 [Concomitant]
  16. METOPROLOL [Concomitant]
  17. K-DUR [Concomitant]
  18. SODIUM PHOSPHATES [Concomitant]
  19. XANAX [Concomitant]
  20. DILTIAZEM [Concomitant]
  21. ROCEPHIN [Concomitant]
  22. LIVOSTIN [Concomitant]
  23. HYDROCODONE BITARTRATE [Concomitant]
  24. PRILOSEC [Concomitant]
  25. PHENERGAN [Concomitant]
  26. CLAFORAN [Concomitant]
  27. DIGIBIND [Concomitant]
  28. LIPITOR [Concomitant]
  29. XANAX [Concomitant]
  30. CELEXA [Concomitant]
  31. ACETAMINOPHEN [Concomitant]
  32. METOCLOPRAMIDE [Concomitant]
  33. BENADRYL [Concomitant]
  34. ASPIRIN [Concomitant]
  35. PANTOPRAZOLE [Concomitant]
  36. LASIX [Concomitant]
  37. NITROGLYCERIN [Concomitant]
  38. MEGACE [Concomitant]
  39. PAXIL [Concomitant]
  40. DEPO-MEDROL [Concomitant]
  41. DIGOXIN [Suspect]
     Dosage: 0.125 MG;QD;PO
     Route: 048
     Dates: start: 20000401, end: 20081014
  42. CO-GESIC [Concomitant]
  43. ALBUTEROL [Concomitant]
  44. ERYTHROMYCIN [Concomitant]
  45. MILK OF MAGNESIA TAB [Concomitant]
  46. VITAMIN B6 [Concomitant]
  47. SPIRONOLACTONE [Concomitant]
  48. FOLIC ACID [Concomitant]
  49. ZOCOR [Concomitant]
  50. TOPROL-XL [Concomitant]
  51. TYLENOL-500 [Concomitant]
  52. COUMADIN [Concomitant]
  53. PREDNISONE [Concomitant]
  54. ARICEPT [Concomitant]

REACTIONS (66)
  - RENAL FAILURE [None]
  - FALL [None]
  - TRAUMATIC BRAIN INJURY [None]
  - COUGH [None]
  - DECUBITUS ULCER [None]
  - SEBORRHOEIC DERMATITIS [None]
  - DYSPNOEA [None]
  - DECREASED APPETITE [None]
  - CONFUSIONAL STATE [None]
  - BLOOD TRIGLYCERIDES INCREASED [None]
  - CHRONIC OBSTRUCTIVE PULMONARY DISEASE [None]
  - ATRIAL FIBRILLATION [None]
  - INJURY [None]
  - ECONOMIC PROBLEM [None]
  - OEDEMA PERIPHERAL [None]
  - VENTRICULAR TACHYCARDIA [None]
  - TOXICITY TO VARIOUS AGENTS [None]
  - ANAEMIA [None]
  - LACERATION [None]
  - RALES [None]
  - HYPERLIPIDAEMIA [None]
  - RENAL CYST [None]
  - CORONARY ARTERY DISEASE [None]
  - PRURITUS [None]
  - INCONTINENCE [None]
  - ARTHRITIS [None]
  - JOINT STIFFNESS [None]
  - GAIT DISTURBANCE [None]
  - PAIN IN EXTREMITY [None]
  - DIVERTICULITIS [None]
  - CONCUSSION [None]
  - ANXIETY [None]
  - RENAL FAILURE CHRONIC [None]
  - SKIN DISCOLOURATION [None]
  - ASTHENIA [None]
  - FATIGUE [None]
  - MENTAL RETARDATION [None]
  - HEADACHE [None]
  - ELECTROCARDIOGRAM ABNORMAL [None]
  - BLOOD SODIUM DECREASED [None]
  - BLOOD URIC ACID INCREASED [None]
  - ATELECTASIS [None]
  - ELECTROCARDIOGRAM T WAVE ABNORMAL [None]
  - CARDIOACTIVE DRUG LEVEL BELOW THERAPEUTIC [None]
  - BRAIN NATRIURETIC PEPTIDE INCREASED [None]
  - CARDIAC FAILURE CONGESTIVE [None]
  - NAUSEA [None]
  - CARDIOMYOPATHY [None]
  - SUPRAVENTRICULAR EXTRASYSTOLES [None]
  - HAEMATOMA [None]
  - FACE INJURY [None]
  - PAIN IN JAW [None]
  - DYSPEPSIA [None]
  - CELLULITIS [None]
  - ORTHOPNOEA [None]
  - LEFT VENTRICULAR DYSFUNCTION [None]
  - MITRAL VALVE INCOMPETENCE [None]
  - DEMENTIA [None]
  - WEIGHT DECREASED [None]
  - DIZZINESS [None]
  - BLOOD CHOLESTEROL INCREASED [None]
  - ANGINA PECTORIS [None]
  - SMALL INTESTINAL OBSTRUCTION [None]
  - CHOLELITHIASIS [None]
  - PALPITATIONS [None]
  - VENTRICULAR EXTRASYSTOLES [None]
